FAERS Safety Report 7081432-2 (Version None)
Quarter: 2010Q4

REPORT INFORMATION
  Report Type: 
  Country: None (occurrence: None)
  Receive Date: 20101025
  Receipt Date: 20101013
  Transmission Date: 20110411
  Serious: Yes (Death, Hospitalization)
  Sender: FDA-Public Use
  Company Number: 107318

PATIENT
  Age: 42 Year
  Sex: Male

DRUGS (1)
  1. RIFAMPIN [Suspect]
     Indication: TUBERCULOSIS
     Dosage: 450MG
     Dates: start: 20090211

REACTIONS (12)
  - ALTERED STATE OF CONSCIOUSNESS [None]
  - ANXIETY [None]
  - ASTERIXIS [None]
  - COMA [None]
  - HAEMORRHAGIC DIATHESIS [None]
  - HEPATIC FAILURE [None]
  - HEPATITIS FULMINANT [None]
  - HYPERAMMONAEMIA [None]
  - HYPERBILIRUBINAEMIA [None]
  - HYPERVENTILATION [None]
  - PROTHROMBIN TIME PROLONGED [None]
  - PYREXIA [None]
